FAERS Safety Report 13980972 (Version 1)
Quarter: 2017Q3

REPORT INFORMATION
  Report Type: Spontaneous
  Country: US (occurrence: None)
  Receive Date: 20170915
  Receipt Date: 20170915
  Transmission Date: 20171128
  Serious: No
  Sender: FDA-Public Use
  Company Number: None

PATIENT
  Age: 79 Year
  Sex: Male

DRUGS (3)
  1. CEFEPIME [Concomitant]
     Active Substance: CEFEPIME HYDROCHLORIDE
  2. PROPRANOLOL [Suspect]
     Active Substance: PROPRANOLOL HYDROCHLORIDE
     Indication: NEUROPATHY PERIPHERAL
     Route: 048
     Dates: start: 20170809, end: 20170809
  3. VANCOMYCIN [Concomitant]
     Active Substance: VANCOMYCIN

REACTIONS (3)
  - Tachycardia [None]
  - Hypotension [None]
  - Bradycardia [None]

NARRATIVE: CASE EVENT DATE: 20170809
